FAERS Safety Report 20865588 (Version 1)
Quarter: 2022Q2

REPORT INFORMATION
  Report Type: Spontaneous
  Country: US (occurrence: US)
  Receive Date: 20220524
  Receipt Date: 20220524
  Transmission Date: 20220721
  Serious: No
  Sender: FDA-Public Use
  Company Number: US-BRISTOL-MYERS SQUIBB COMPANY-2022-033273

PATIENT
  Age: 84 Year
  Sex: Female
  Weight: 77.564 kg

DRUGS (1)
  1. REVLIMID [Suspect]
     Active Substance: LENALIDOMIDE
     Indication: Plasma cell myeloma
     Dosage: DOSE: 10 MILLIGRAM, FREQ: 2W, 1W OFF
     Route: 048
     Dates: start: 20220401

REACTIONS (3)
  - Peripheral swelling [Unknown]
  - Muscle spasms [Not Recovered/Not Resolved]
  - Ageusia [Not Recovered/Not Resolved]
